FAERS Safety Report 24293931 (Version 2)
Quarter: 2025Q3

REPORT INFORMATION
  Report Type: Spontaneous
  Country: US (occurrence: US)
  Receive Date: 20240906
  Receipt Date: 20250905
  Transmission Date: 20251020
  Serious: No
  Sender: DOMPE FARMACEUTICI
  Company Number: US-FARMAPROD-202308-202403-0896

PATIENT
  Age: 60 Year
  Sex: Female

DRUGS (18)
  1. OXERVATE [Suspect]
     Active Substance: CENEGERMIN-BKBJ
     Indication: Neurotrophic keratopathy
     Route: 047
     Dates: start: 20240307, end: 20240501
  2. OXERVATE [Suspect]
     Active Substance: CENEGERMIN-BKBJ
     Indication: Hypoaesthesia eye
  3. OXERVATE [Suspect]
     Active Substance: CENEGERMIN-BKBJ
     Indication: Ulcerative keratitis
  4. OXERVATE [Suspect]
     Active Substance: CENEGERMIN-BKBJ
  5. OXERVATE [Suspect]
     Active Substance: CENEGERMIN-BKBJ
     Route: 047
     Dates: start: 20240619
  6. OXERVATE [Suspect]
     Active Substance: CENEGERMIN-BKBJ
  7. PRED FORTE [Concomitant]
     Active Substance: PREDNISOLONE ACETATE
  8. OCUVITE EYE HEALTH [Concomitant]
  9. ASPIRIN [Concomitant]
     Active Substance: ASPIRIN
  10. BUPROPION [Concomitant]
     Active Substance: BUPROPION
  11. CARVEDILOL [Concomitant]
     Active Substance: CARVEDILOL
  12. ENTRESTO [Concomitant]
     Active Substance: SACUBITRIL\VALSARTAN
  13. ERYTHROMYCIN [Concomitant]
     Active Substance: ERYTHROMYCIN
  14. SPIRONOLACTONE [Concomitant]
     Active Substance: SPIRONOLACTONE
  15. LOTEPREDNOL ETABONATE [Concomitant]
     Active Substance: LOTEPREDNOL ETABONATE
  16. ALLEGRA [Concomitant]
     Active Substance: FEXOFENADINE HYDROCHLORIDE
  17. TYLENOL [Concomitant]
     Active Substance: ACETAMINOPHEN
  18. MOXIFLOXACIN [Concomitant]
     Active Substance: MOXIFLOXACIN

REACTIONS (9)
  - Dizziness [Not Recovered/Not Resolved]
  - Product dose omission issue [Unknown]
  - Headache [Not Recovered/Not Resolved]
  - Swelling face [Unknown]
  - Eye pain [Unknown]
  - Eye irritation [Unknown]
  - Photophobia [Unknown]
  - Ear infection [Unknown]
  - Treatment noncompliance [Unknown]

NARRATIVE: CASE EVENT DATE: 20240307
